FAERS Safety Report 5474668-5 (Version None)
Quarter: 2007Q3

REPORT INFORMATION
  Report Type: 
  Country: None (occurrence: None)
  Receive Date: 20070831
  Receipt Date: 20070328
  Transmission Date: 20080115
  Serious: No
  Sender: FDA-Public Use
  Company Number: 260997

PATIENT
  Age: 59 Year
  Sex: Female
  Weight: 49.9 kg

DRUGS (5)
  1. NOVOLIN N [Suspect]
     Indication: TYPE 1 DIABETES MELLITUS
     Dosage: 21 IU, QD, SUBCUTANEOUS
     Route: 058
     Dates: start: 20060101
  2. NOVOLIN R [Concomitant]
  3. FOSAMAX [Concomitant]
  4. CALCIUM (CALCIUM) [Concomitant]
  5. PREMARIN [Concomitant]

REACTIONS (1)
  - BLOOD GLUCOSE DECREASED [None]
